FAERS Safety Report 17683720 (Version 1)
Quarter: 2020Q2

REPORT INFORMATION
  Report Type: Spontaneous
  Country: US (occurrence: US)
  Receive Date: 20200417
  Receipt Date: 20200417
  Transmission Date: 20200714
  Serious: Yes (Hospitalization)
  Sender: FDA-Public Use
  Company Number: None

PATIENT
  Age: 75 Year
  Sex: Female

DRUGS (9)
  1. FUROSEMIDE. [Concomitant]
     Active Substance: FUROSEMIDE
  2. HYDRALAZINE [Concomitant]
     Active Substance: HYDRALAZINE HYDROCHLORIDE
  3. CARVEDILOL. [Concomitant]
     Active Substance: CARVEDILOL
  4. ULORIC [Concomitant]
     Active Substance: FEBUXOSTAT
  5. ASPIRIN. [Concomitant]
     Active Substance: ASPIRIN
  6. DIALYVITE [Concomitant]
     Active Substance: ASCORBIC ACID\BIOTIN\CALCIUM PANTOTHENATE\COBALAMIN\FOLIC ACID\NIACINAMIDE\PYRIDOXINE HYDROCHLORIDE\RIBOFLAVIN\THIAMINE MONONITRATE
  7. TADALAFIL 20MG [Suspect]
     Active Substance: TADALAFIL
     Indication: PULMONARY ARTERIAL HYPERTENSION
     Route: 048
     Dates: start: 20181017
  8. FERREX [Concomitant]
     Active Substance: FERRIC POLYSACCHARIDE COMPLEX
  9. LOSARTANPOT [Concomitant]

REACTIONS (3)
  - Therapy interrupted [None]
  - Diarrhoea [None]
  - Syncope [None]

NARRATIVE: CASE EVENT DATE: 202001
